FAERS Safety Report 16753246 (Version 1)
Quarter: 2019Q3

REPORT INFORMATION
  Report Type: Spontaneous
  Country: US (occurrence: US)
  Receive Date: 20190829
  Receipt Date: 20190829
  Transmission Date: 20191005
  Serious: Yes (Other)
  Sender: FDA-Public Use
  Company Number: US-HIKMA PHARMACEUTICALS USA INC.-US-H14001-19-46734

PATIENT
  Age: 7 Decade
  Sex: Male

DRUGS (1)
  1. CAPECITABINE. [Suspect]
     Active Substance: CAPECITABINE
     Indication: SKIN CANCER
     Dosage: SYSTEMIC ()
     Route: 065

REACTIONS (2)
  - Transaminases increased [Unknown]
  - Blood creatinine increased [Unknown]
